FAERS Safety Report 7290524-4 (Version None)
Quarter: 2011Q1

REPORT INFORMATION
  Report Type: 
  Country: None (occurrence: None)
  Receive Date: 20110214
  Receipt Date: 20110204
  Transmission Date: 20110831
  Serious: No
  Sender: FDA-Public Use
  Company Number: US-PFIZER INC-2011026287

PATIENT
  Sex: Male

DRUGS (1)
  1. FLAGYL [Suspect]
     Dosage: UNK
     Route: 042

REACTIONS (3)
  - DYSGEUSIA [None]
  - AGEUSIA [None]
  - BLOOD PRESSURE INCREASED [None]
